FAERS Safety Report 7472551-7 (Version None)
Quarter: 2011Q2

REPORT INFORMATION
  Report Type: 
  Country: None (occurrence: None)
  Receive Date: 20110511
  Receipt Date: 20101021
  Transmission Date: 20111010
  Serious: No
  Sender: FDA-Public Use
  Company Number: US-AMGEN-TCS432727

PATIENT
  Age: 46 Year
  Sex: Female
  Weight: 106.58 kg

DRUGS (7)
  1. REQUIP [Concomitant]
     Route: 048
  2. ENBREL [Suspect]
     Indication: RHEUMATOID ARTHRITIS
     Dosage: 50 MG, 2 TIMES/WK
     Route: 058
     Dates: start: 20100601, end: 20100901
  3. ENBREL [Suspect]
     Indication: PSORIASIS
  4. MELOXICAM MK [Concomitant]
     Route: 048
  5. LUNESTA [Concomitant]
     Route: 048
  6. BENICAR [Concomitant]
     Route: 048
  7. CYMBALTA [Concomitant]
     Route: 048

REACTIONS (3)
  - INJECTION SITE REACTION [None]
  - INJECTION SITE URTICARIA [None]
  - INJECTION SITE WARMTH [None]
